FAERS Safety Report 8586433-0 (Version None)
Quarter: 2012Q3

REPORT INFORMATION
  Report Type: 
  Country: None (occurrence: None)
  Receive Date: 20120810
  Receipt Date: 20120803
  Transmission Date: 20120928
  Serious: No
  Sender: FDA-Public Use
  Company Number: US-BAYER-2012-080079

PATIENT

DRUGS (2)
  1. ALLERGY PILLS [Suspect]
     Dosage: 2 DF, UNK
  2. ALEVE (CAPLET) [Suspect]
     Dosage: 2 DF, UNK

REACTIONS (1)
  - EUPHORIC MOOD [None]
